FAERS Safety Report 19078855 (Version 1)
Quarter: 2021Q1

REPORT INFORMATION
  Report Type: Spontaneous
  Country: US (occurrence: US)
  Receive Date: 20210331
  Receipt Date: 20210331
  Transmission Date: 20210420
  Serious: No
  Sender: FDA-Public Use
  Company Number: US-PFIZER INC-2019120689

PATIENT
  Age: 20 Year
  Sex: Female

DRUGS (6)
  1. XELJANZ [Suspect]
     Active Substance: TOFACITINIB CITRATE
     Indication: HIDRADENITIS
     Dosage: 15 MG, DAILY ( 2 TABS PO (PER ORAL) QAM (EVERY MORNING) AND 1 TAB PO (PER ORAL) QPM (EVERY EVENING)
     Route: 048
  2. XELJANZ [Suspect]
     Active Substance: TOFACITINIB CITRATE
     Indication: ECZEMA
     Dosage: 10 MG, 2X/DAY
     Route: 048
  3. TOFACITINIB CITRATE [Suspect]
     Active Substance: TOFACITINIB CITRATE
     Indication: HIDRADENITIS
     Dosage: 10 MG, 2X/DAY
  4. TOFACITINIB CITRATE [Suspect]
     Active Substance: TOFACITINIB CITRATE
     Indication: ECZEMA
     Dosage: 15 MG, DAILY (SPLITTING ONE PILL)
  5. XELJANZ [Suspect]
     Active Substance: TOFACITINIB CITRATE
     Indication: DERMATITIS ATOPIC
     Dosage: 5 MG
  6. XELJANZ [Suspect]
     Active Substance: TOFACITINIB CITRATE
     Indication: DERMATITIS

REACTIONS (2)
  - Off label use [Unknown]
  - Condition aggravated [Unknown]
